FAERS Safety Report 10672461 (Version 2)
Quarter: 2014Q4

REPORT INFORMATION
  Report Type: Report from Study
  Country: US (occurrence: US)
  Receive Date: 20141223
  Receipt Date: 20141223
  Transmission Date: 20150529
  Serious: Yes (Other)
  Sender: FDA-Public Use
  Company Number: US-CELGENE-163-C5013-06081017

PATIENT
  Age: 29 Year
  Sex: Male
  Weight: 89.89 kg

DRUGS (2)
  1. CC-5013 [Suspect]
     Active Substance: LENALIDOMIDE
     Indication: COMPLEX REGIONAL PAIN SYNDROME
     Route: 048
     Dates: start: 20060427, end: 20060802
  2. LEXAPRO [Concomitant]
     Active Substance: ESCITALOPRAM OXALATE
     Indication: PRODUCT USED FOR UNKNOWN INDICATION
     Dosage: 20 MILLIGRAM
     Route: 065
     Dates: start: 200601

REACTIONS (1)
  - Pregnancy of partner [Recovered/Resolved]

NARRATIVE: CASE EVENT DATE: 20060713
